FAERS Safety Report 8242093 (Version 2)
Quarter: 2012Q4

REPORT INFORMATION
  Report Type: Report from Study
  Country: FR (occurrence: FR)
  Receive Date: 20111112
  Receipt Date: 20121010
  Transmission Date: 20130627
  Serious: Yes (Hospitalization)
  Sender: FDA-Public Use
  Company Number: FR-US-EMD SERONO, INC.-220006N09FRA

PATIENT
  Age: 4 Year
  Sex: Female
  Weight: 11 kg

DRUGS (2)
  1. SAIZEN [Suspect]
     Indication: SMALL FOR DATES BABY
     Dates: start: 20091210
  2. SAIZEN [Suspect]
     Dates: start: 200901, end: 20091210

REACTIONS (2)
  - Ear infection [Recovered/Resolved]
  - Tonsillar disorder [Recovered/Resolved]
